FAERS Safety Report 10737593 (Version 1)
Quarter: 2015Q1

REPORT INFORMATION
  Report Type: Spontaneous
  Country: US (occurrence: US)
  Receive Date: 20150126
  Receipt Date: 20150126
  Transmission Date: 20150721
  Serious: No
  Sender: FDA-Public Use
  Company Number: US-SA-2014SA180727

PATIENT
  Age: 51 Year
  Sex: Female
  Weight: 47.63 kg

DRUGS (28)
  1. LACTOBACILLUS ACIDOPHILUS/BOVINE COLOSTRUM/BIFIDOBACTERIUM LACTIS [Concomitant]
  2. GAMMAGARD [Concomitant]
     Active Substance: HUMAN IMMUNOGLOBULIN G
     Dosage: LIQUID
  3. CYMBALTA [Concomitant]
     Active Substance: DULOXETINE HYDROCHLORIDE
     Dosage: STRENGTH: 30 MG
  4. CELEBREX [Concomitant]
     Active Substance: CELECOXIB
     Dosage: STRENGTH: 200 MG
  5. IMMUNOGLOBULIN [Concomitant]
     Active Substance: HUMAN IMMUNOGLOBULIN G
     Indication: IMMUNODEFICIENCY COMMON VARIABLE
     Dosage: DOSE: 12 GM, EVERY 04 WEEKS??STRENGTH: 10 GM
     Route: 058
  6. DIPHENHYDRAMINE [Concomitant]
     Active Substance: DIPHENHYDRAMINE
  7. BACLOFEN. [Concomitant]
     Active Substance: BACLOFEN
     Dosage: STRENGTH: 10 MG
  8. MESALAZINE [Concomitant]
     Active Substance: MESALAMINE
     Dosage: STRENGTH: 800 MG
  9. ENTOCORT EC [Concomitant]
     Active Substance: BUDESONIDE
     Dosage: STRENGTH: 03 MG
  10. ALBUTEROL. [Concomitant]
     Active Substance: ALBUTEROL
     Dosage: INHALER, STRENGTH: 90 MCG
  11. BENADRYL [Concomitant]
     Active Substance: DIPHENHYDRAMINE HYDROCHLORIDE
     Dosage: STRENGTH: 25 MG, KAPSEALS
  12. IMMUNOGLOBULIN [Concomitant]
     Active Substance: HUMAN IMMUNOGLOBULIN G
     Indication: IMMUNODEFICIENCY COMMON VARIABLE
     Dosage: DOSE: 12 GM, EVERY 04 WEEKS??STRENGTH: 02 GM
     Route: 058
  13. DEVICE NOS [Concomitant]
     Active Substance: DEVICE
  14. DIFLUCAN [Concomitant]
     Active Substance: FLUCONAZOLE
     Dosage: STRENGTH: 100 MG
  15. CALCIUM [Concomitant]
     Active Substance: CALCIUM
     Dosage: STRENGTH: 500 MG
  16. KETEK [Suspect]
     Active Substance: TELITHROMYCIN
     Route: 065
  17. ITRACONAZOLE. [Concomitant]
     Active Substance: ITRACONAZOLE
     Dosage: FORM: POWDER
  18. CLARITIN [Concomitant]
     Active Substance: LORATADINE
     Dosage: STRENGTH: 10 MG
  19. SOMA [Concomitant]
     Active Substance: CARISOPRODOL
     Dosage: STRENGTH: 350 MG
  20. HYOSCYAMINE [Concomitant]
     Active Substance: HYOSCYAMINE
     Dosage: STRENGTH: 0.125 MG
  21. LIDOCAINE/PRILOCAINE [Concomitant]
  22. XYZAL [Concomitant]
     Active Substance: LEVOCETIRIZINE DIHYDROCHLORIDE
     Dosage: STRENGTH: 05 MG
  23. LOMOTIL [Concomitant]
     Active Substance: ATROPINE SULFATE\DIPHENOXYLATE HYDROCHLORIDE
  24. MUCINEX [Concomitant]
     Active Substance: GUAIFENESIN
     Dosage: STRENGTH: 1200 MG
  25. PRILOSEC [Concomitant]
     Active Substance: OMEPRAZOLE MAGNESIUM
     Dosage: STRENGTH: 20 MG
  26. TRAMADOL HYDROCHLORIDE. [Concomitant]
     Active Substance: TRAMADOL HYDROCHLORIDE
     Dosage: STRENGTH: 50 MG
  27. LIDOCAINE. [Concomitant]
     Active Substance: LIDOCAINE
  28. NASONEX [Concomitant]
     Active Substance: MOMETASONE FUROATE
     Dosage: FORM: NASAL SPRAY, STRENGTH: 50 MCG

REACTIONS (1)
  - Hypersensitivity [Unknown]
